FAERS Safety Report 25530849 (Version 3)
Quarter: 2025Q3

REPORT INFORMATION
  Report Type: Spontaneous
  Country: CN (occurrence: CN)
  Receive Date: 20250708
  Receipt Date: 20250904
  Transmission Date: 20251021
  Serious: Yes (Other)
  Sender: NOVARTIS
  Company Number: CN-002147023-NVSC2025CN107018

PATIENT
  Age: 79 Year
  Sex: Female
  Weight: 53 kg

DRUGS (14)
  1. SACUBITRIL\VALSARTAN [Suspect]
     Active Substance: SACUBITRIL\VALSARTAN
     Indication: Cardiac failure chronic
     Dosage: 0.05 G, BID
     Route: 048
     Dates: start: 20240622, end: 20240828
  2. SACUBITRIL\VALSARTAN [Suspect]
     Active Substance: SACUBITRIL\VALSARTAN
     Dosage: 100 MG, BID
     Route: 048
     Dates: start: 20240913, end: 20241011
  3. SACUBITRIL\VALSARTAN [Suspect]
     Active Substance: SACUBITRIL\VALSARTAN
     Dosage: 50 MG, BID
     Route: 048
     Dates: start: 20241011, end: 20241108
  4. SACUBITRIL\VALSARTAN [Suspect]
     Active Substance: SACUBITRIL\VALSARTAN
     Dosage: 100 MG, BID
     Route: 048
     Dates: start: 20241108, end: 20241205
  5. SACUBITRIL\VALSARTAN [Suspect]
     Active Substance: SACUBITRIL\VALSARTAN
     Dosage: 150 MG, BID
     Route: 048
     Dates: start: 20241205, end: 20241231
  6. SACUBITRIL\VALSARTAN [Suspect]
     Active Substance: SACUBITRIL\VALSARTAN
     Dosage: 200 MG, BID
     Route: 048
     Dates: start: 20241231, end: 20250324
  7. SACUBITRIL\VALSARTAN [Suspect]
     Active Substance: SACUBITRIL\VALSARTAN
     Dosage: 150 MG, BID
     Route: 048
     Dates: start: 20250324, end: 20250619
  8. SACUBITRIL\VALSARTAN [Suspect]
     Active Substance: SACUBITRIL\VALSARTAN
     Dosage: 0.05 G, BID (EVENING AND MORNING)
     Route: 048
     Dates: start: 20250708, end: 20250811
  9. EMPAGLIFLOZIN [Concomitant]
     Active Substance: EMPAGLIFLOZIN
     Indication: Cardiac failure chronic
     Dosage: 10 MG, QD
     Route: 048
     Dates: start: 20240623
  10. SPIRONOLACTONE [Concomitant]
     Active Substance: SPIRONOLACTONE
     Indication: Cardiac failure chronic
     Dosage: 20 MG, QD
     Route: 048
     Dates: start: 20240622
  11. TORSEMIDE [Concomitant]
     Active Substance: TORSEMIDE
     Indication: Cardiac failure chronic
     Dosage: 10 MG, QD
     Route: 048
     Dates: start: 20240622
  12. CLOPIDOGREL BISULFATE [Concomitant]
     Active Substance: CLOPIDOGREL BISULFATE
     Indication: Arteriosclerosis coronary artery
     Dosage: 75 MG, QD
     Route: 065
     Dates: start: 20240622
  13. ROSUVASTATIN CALCIUM [Concomitant]
     Active Substance: ROSUVASTATIN CALCIUM
     Indication: Arteriosclerosis coronary artery
     Dosage: 10 MG, QD
     Route: 065
     Dates: start: 20240622
  14. METFORMIN [Concomitant]
     Active Substance: METFORMIN HYDROCHLORIDE
     Indication: Type 2 diabetes mellitus
     Dosage: 0.5 G, TID (SUSTAINED-RELEASE TABLETS)
     Route: 048
     Dates: start: 20240622

REACTIONS (13)
  - Acute kidney injury [Recovering/Resolving]
  - Creatinine urine abnormal [Unknown]
  - Glomerular filtration rate abnormal [Unknown]
  - Blood urea increased [Recovering/Resolving]
  - Ventricular hypokinesia [Unknown]
  - Aortic valve incompetence [Unknown]
  - Urinary occult blood positive [Recovering/Resolving]
  - Thirst [Unknown]
  - Blood creatine phosphokinase abnormal [Recovering/Resolving]
  - Glucose urine present [Not Recovered/Not Resolved]
  - Aortic dilatation [Unknown]
  - Diastolic dysfunction [Unknown]
  - Hypotension [Unknown]

NARRATIVE: CASE EVENT DATE: 20250619
